FAERS Safety Report 9633943 (Version 1)
Quarter: 2013Q4

REPORT INFORMATION
  Report Type: Spontaneous
  Country: US (occurrence: US)
  Receive Date: 20131021
  Receipt Date: 20131021
  Transmission Date: 20140711
  Serious: Yes (Other)
  Sender: FDA-Public Use
  Company Number: US-ASTRAZENECA-2013SE10899

PATIENT
  Sex: Female

DRUGS (1)
  1. NEXIUM [Suspect]
     Indication: REGURGITATION
     Route: 048

REACTIONS (3)
  - Monoplegia [Unknown]
  - Poor peripheral circulation [Unknown]
  - Muscle tightness [Unknown]
